FAERS Safety Report 9959345 (Version 1)
Quarter: 2014Q1

REPORT INFORMATION
  Report Type: Spontaneous
  Country: US (occurrence: US)
  Receive Date: 20140305
  Receipt Date: 20140305
  Transmission Date: 20141002
  Serious: No
  Sender: FDA-Public Use
  Company Number: US-ABBVIE-13P-163-1100624-00

PATIENT
  Age: 22 Year
  Sex: Male
  Weight: 65.83 kg

DRUGS (7)
  1. HUMIRA [Suspect]
     Indication: CROHN^S DISEASE
     Dosage: 160 MG ONCE
     Dates: start: 20130523, end: 20130523
  2. HUMIRA [Suspect]
     Route: 058
     Dates: start: 20130606
  3. AZASAN [Concomitant]
     Indication: CROHN^S DISEASE
     Dosage: 75 MG 2 QD UNTIL LAST WEEK
     Dates: start: 201305
  4. PREDNISONE [Concomitant]
     Indication: CROHN^S DISEASE
  5. MULTIVITAMINES WITH IRON [Concomitant]
     Indication: PRODUCT USED FOR UNKNOWN INDICATION
     Dosage: 1 QD
  6. CALCIUM [Concomitant]
     Indication: PRODUCT USED FOR UNKNOWN INDICATION
     Dosage: 1 QD
  7. VITAMIN D [Concomitant]
     Indication: PRODUCT USED FOR UNKNOWN INDICATION
     Dosage: 1 QD

REACTIONS (4)
  - Drug dose omission [Unknown]
  - Feeling abnormal [Recovered/Resolved]
  - Abdominal pain [Recovered/Resolved]
  - Abdominal distension [Recovered/Resolved]
